FAERS Safety Report 22661444 (Version 1)
Quarter: 2023Q2

REPORT INFORMATION
  Report Type: Spontaneous
  Country: CA (occurrence: CA)
  Receive Date: 20230630
  Receipt Date: 20230630
  Transmission Date: 20230721
  Serious: Yes (Other)
  Sender: FDA-Public Use
  Company Number: CA-SAMSUNG BIOEPIS-SB-2023-17276

PATIENT
  Age: 51 Year
  Sex: Male
  Weight: 105 kg

DRUGS (1)
  1. INFLIXIMAB [Suspect]
     Active Substance: INFLIXIMAB
     Indication: Colitis ulcerative
     Route: 042

REACTIONS (3)
  - Umbilical hernia [Recovered/Resolved]
  - COVID-19 [Recovered/Resolved]
  - Off label use [Recovered/Resolved]
